FAERS Safety Report 24912401 (Version 1)
Quarter: 2025Q1

REPORT INFORMATION
  Report Type: Spontaneous
  Country: US (occurrence: US)
  Receive Date: 20250131
  Receipt Date: 20250131
  Transmission Date: 20250409
  Serious: Yes (Hospitalization)
  Sender: GLAXOSMITHKLINE
  Company Number: US-GSKCCFUS-Case-00987399_AE-58544

PATIENT

DRUGS (2)
  1. BREO ELLIPTA [Suspect]
     Active Substance: FLUTICASONE FUROATE\VILANTEROL TRIFENATATE
     Indication: Asthma
     Dosage: 1 PUFF(S), QD 200/25MCG
     Route: 055
     Dates: start: 202010
  2. VENTOLIN HFA [Suspect]
     Active Substance: ALBUTEROL SULFATE
     Indication: Product used for unknown indication

REACTIONS (7)
  - Hospitalisation [Unknown]
  - Amnesia [Unknown]
  - COVID-19 [Unknown]
  - Influenza [Unknown]
  - Wrong technique in device usage process [Unknown]
  - Drug ineffective [Not Recovered/Not Resolved]
  - Product complaint [Unknown]

NARRATIVE: CASE EVENT DATE: 20241201
